FAERS Safety Report 8114273-5 (Version None)
Quarter: 2012Q1

REPORT INFORMATION
  Report Type: 
  Country: None (occurrence: None)
  Receive Date: 20120206
  Receipt Date: 20120127
  Transmission Date: 20120608
  Serious: Yes (Other)
  Sender: FDA-Public Use
  Company Number: US-BIOGENIDEC-2012BI003299

PATIENT
  Age: 54 Year
  Sex: Female

DRUGS (8)
  1. SOMA [Concomitant]
  2. KLONOPIN [Concomitant]
  3. REQUIP [Concomitant]
  4. TYSABRI [Suspect]
     Indication: MULTIPLE SCLEROSIS
     Route: 042
     Dates: start: 20090729, end: 20100601
  5. PERCOCET [Concomitant]
  6. PREMPRO [Concomitant]
  7. PREVACID [Concomitant]
  8. FENTANYL CITRATE [Concomitant]

REACTIONS (6)
  - WHITE BLOOD CELLS URINE POSITIVE [None]
  - LUNG ADENOCARCINOMA METASTATIC [None]
  - HAEMOGLOBIN DECREASED [None]
  - FATIGUE [None]
  - ORAL CANDIDIASIS [None]
  - THROMBOCYTOPENIA [None]
